FAERS Safety Report 4640326-X (Version None)
Quarter: 2005Q2

REPORT INFORMATION
  Report Type: 
  Country: None (occurrence: None)
  Receive Date: 20050420
  Receipt Date: 20050204
  Transmission Date: 20051028
  Serious: No
  Sender: FDA-Public Use
  Company Number: US-GLAXOSMITHKLINE-A0543955A

PATIENT
  Age: 54 Year
  Sex: Female

DRUGS (5)
  1. ESKALITH CR [Suspect]
     Dosage: 450MG TWICE PER DAY
     Route: 048
  2. LITHIUM CARBONATE [Suspect]
     Dosage: 300MG IN THE MORNING
     Route: 048
  3. DEPAKOTE ER [Concomitant]
  4. VITAMIN C [Concomitant]
  5. ELECTROLYTE SUPPLEMENTS [Concomitant]

REACTIONS (1)
  - BIPOLAR DISORDER [None]
